FAERS Safety Report 17413587 (Version 1)
Quarter: 2020Q1

REPORT INFORMATION
  Report Type: Spontaneous
  Country: FR (occurrence: FR)
  Receive Date: 20200213
  Receipt Date: 20200213
  Transmission Date: 20200409
  Serious: Yes (Other)
  Sender: FDA-Public Use
  Company Number: NVSC2019FR064038

PATIENT
  Age: 75 Year
  Sex: Female

DRUGS (2)
  1. KISQALI [Suspect]
     Active Substance: RIBOCICLIB
     Indication: BREAST CANCER METASTATIC
     Dosage: 3 DF, QD (3 TABLETS OF 200 MG)
     Route: 048
     Dates: start: 20191001, end: 20191105
  2. FEMARA [Concomitant]
     Active Substance: LETROZOLE
     Indication: BREAST CANCER METASTATIC
     Dosage: 1 DF, QD
     Route: 048
     Dates: start: 20190901, end: 20191105

REACTIONS (7)
  - Faeces pale [Unknown]
  - Jaundice [Recovering/Resolving]
  - Cholestasis [Recovering/Resolving]
  - Chromaturia [Unknown]
  - Nausea [Unknown]
  - Hepatitis acute [Recovering/Resolving]
  - Fatigue [Unknown]

NARRATIVE: CASE EVENT DATE: 20191019
